FAERS Safety Report 21663502 (Version 1)
Quarter: 2022Q4

REPORT INFORMATION
  Report Type: Spontaneous
  Country: US (occurrence: None)
  Receive Date: 20221129
  Receipt Date: 20221129
  Transmission Date: 20230113
  Serious: Yes (Hospitalization)
  Sender: FDA-Public Use
  Company Number: None

PATIENT
  Sex: Female
  Weight: 76.5 kg

DRUGS (1)
  1. NUVARING [Suspect]
     Active Substance: ETHINYL ESTRADIOL\ETONOGESTREL
     Indication: Contraception
     Dosage: OTHER FREQUENCY : ONCE EVERY 3 WEEKS;?
     Route: 067
     Dates: start: 20221123, end: 20221129

REACTIONS (8)
  - Chest pain [None]
  - Dyspnoea [None]
  - Nausea [None]
  - Thrombosis [None]
  - Pain in extremity [None]
  - Asthenia [None]
  - Musculoskeletal chest pain [None]
  - Fatigue [None]
